FAERS Safety Report 10055471 (Version 2)
Quarter: 2014Q2

REPORT INFORMATION
  Report Type: Spontaneous
  Country: US (occurrence: US)
  Receive Date: 20140403
  Receipt Date: 20140507
  Transmission Date: 20141212
  Serious: No
  Sender: FDA-Public Use
  Company Number: US-BIOGENIDEC-2014BI031508

PATIENT
  Sex: Female

DRUGS (6)
  1. TYSABRI [Suspect]
     Indication: MULTIPLE SCLEROSIS
     Route: 042
     Dates: start: 20120224, end: 2014
  2. AMPYRA [Concomitant]
     Indication: MULTIPLE SCLEROSIS
     Route: 048
     Dates: start: 200712, end: 201308
  3. FLUOXETINE [Concomitant]
     Dates: start: 201309
  4. VICODIN [Concomitant]
  5. TRAMADOL [Concomitant]
     Dates: start: 201401
  6. TIZANIDINE [Concomitant]
     Dates: start: 201308

REACTIONS (1)
  - Drug ineffective [Unknown]
